FAERS Safety Report 9160656 (Version 1)
Quarter: 2013Q1

REPORT INFORMATION
  Report Type: Spontaneous
  Country: US (occurrence: US)
  Receive Date: 20130313
  Receipt Date: 20130313
  Transmission Date: 20140127
  Serious: No
  Sender: FDA-Public Use
  Company Number: US-ABBOTT-13P-163-1044995-00

PATIENT
  Sex: Male
  Weight: 86.26 kg

DRUGS (8)
  1. DEPAKOTE [Suspect]
     Indication: AGGRESSION
     Dates: start: 201212, end: 201301
  2. DEPAKOTE [Suspect]
     Indication: AGITATION
     Dates: start: 201301, end: 201302
  3. DEPAKOTE [Suspect]
     Dates: start: 201302
  4. TEGRETOL [Concomitant]
     Indication: AGGRESSION
  5. TEGRETOL [Concomitant]
     Indication: AGITATION
  6. RISPERDAL [Concomitant]
     Indication: AGGRESSION
  7. RISPERDAL [Concomitant]
     Indication: AGITATION
  8. PROPANALOL [Concomitant]
     Indication: ANGER

REACTIONS (2)
  - Off label use [Unknown]
  - Therapy change [Unknown]
